FAERS Safety Report 4937636-5 (Version None)
Quarter: 2006Q1

REPORT INFORMATION
  Report Type: 
  Country: None (occurrence: None)
  Receive Date: 20060306
  Receipt Date: 20060224
  Transmission Date: 20060701
  Serious: Yes (Death)
  Sender: FDA-Public Use
  Company Number: 16320785-06020582

PATIENT
  Age: 54 Year
  Sex: Female

DRUGS (1)
  1. THALOMID [Suspect]
     Indication: MYELODYSPLASTIC SYNDROME
     Dosage: 500 - 100 MG, DAILY, ORAL
     Route: 048
     Dates: start: 20040211

REACTIONS (1)
  - ACUTE MYELOID LEUKAEMIA [None]
